FAERS Safety Report 15769928 (Version 1)
Quarter: 2018Q4

REPORT INFORMATION
  Report Type: Report from Study
  Country: TW (occurrence: TW)
  Receive Date: 20181228
  Receipt Date: 20181228
  Transmission Date: 20190205
  Serious: Yes (Hospitalization)
  Sender: FDA-Public Use
  Company Number: TW-ELI_LILLY_AND_COMPANY-TW201812007543

PATIENT
  Age: 87 Year
  Sex: Female

DRUGS (1)
  1. TERIPARATIDE [Suspect]
     Active Substance: TERIPARATIDE
     Indication: OSTEOPOROSIS
     Dosage: 20 UG, DAILY
     Route: 058
     Dates: start: 20181206

REACTIONS (3)
  - Hypercalcaemia [Unknown]
  - Haemoglobin decreased [Unknown]
  - Overdose [Unknown]

NARRATIVE: CASE EVENT DATE: 20181214
